FAERS Safety Report 7664621-5 (Version None)
Quarter: 2011Q3

REPORT INFORMATION
  Report Type: 
  Country: None (occurrence: None)
  Receive Date: 20110806
  Receipt Date: 20110105
  Transmission Date: 20111222
  Serious: No
  Sender: FDA-Public Use
  Company Number: US-ABBOTT-11P-163-0695801-00

PATIENT
  Sex: Female
  Weight: 61.29 kg

DRUGS (2)
  1. NIASPAN [Suspect]
     Indication: HIGH DENSITY LIPOPROTEIN DECREASED
     Route: 048
     Dates: start: 20100301
  2. ASPIRIN [Concomitant]
     Indication: PROPHYLAXIS
     Dosage: 1 HOUR BEFORE NIASPAN, DAILY
     Route: 048

REACTIONS (6)
  - DIZZINESS [None]
  - ERYTHEMA [None]
  - BURNING SENSATION [None]
  - PRURITUS [None]
  - NAUSEA [None]
  - DERMATITIS ALLERGIC [None]
